FAERS Safety Report 6330455-7 (Version None)
Quarter: 2009Q3

REPORT INFORMATION
  Report Type: 
  Country: None (occurrence: None)
  Receive Date: 20090827
  Receipt Date: 20090819
  Transmission Date: 20100115
  Serious: Yes (Other)
  Sender: FDA-Public Use
  Company Number: US-BAYER-US-2006-026192

PATIENT
  Age: 49 Year
  Sex: Female
  Weight: 58 kg

DRUGS (12)
  1. CLIMARA [Suspect]
     Indication: MENOPAUSAL SYMPTOMS
     Dosage: 100 MCGG/24H
     Route: 062
     Dates: start: 20011005, end: 20020201
  2. CLIMARA [Suspect]
     Dosage: 50 MCG/24H
     Route: 062
     Dates: start: 20010101, end: 20020201
  3. PREMARIN [Suspect]
     Indication: MENOPAUSAL SYMPTOMS
     Dates: start: 19950101, end: 20030101
  4. ESTRATEST [Suspect]
     Indication: MENOPAUSAL SYMPTOMS
     Dosage: UNK, UNK
     Dates: start: 19990101, end: 20010101
  5. LIPITOR [Concomitant]
     Indication: BLOOD CHOLESTEROL INCREASED
     Dosage: UNK, UNK
     Dates: start: 19980101
  6. SYNTHROID [Concomitant]
  7. FOSAMAX [Concomitant]
     Indication: OSTEOPOROSIS
  8. MIACALCIN [Concomitant]
     Indication: OSTEOPOROSIS
  9. LEVAQUIN [Concomitant]
     Indication: THYROID DISORDER
  10. OVRAL [Concomitant]
     Indication: DRUG USE FOR UNKNOWN INDICATION
     Dates: start: 19730723, end: 19770301
  11. LO/OVRAL [Concomitant]
     Indication: DRUG USE FOR UNKNOWN INDICATION
     Dates: start: 19770329
  12. ORTHO-NOVUM 7/7/7-21 [Concomitant]

REACTIONS (1)
  - BREAST CANCER IN SITU [None]
